FAERS Safety Report 9592320 (Version 1)
Quarter: 2013Q3

REPORT INFORMATION
  Report Type: Spontaneous
  Country: US (occurrence: None)
  Receive Date: 20130930
  Receipt Date: 20130930
  Transmission Date: 20140515
  Serious: Yes (Other)
  Sender: FDA-Public Use
  Company Number: 1000047558

PATIENT
  Age: 69 Year
  Sex: Female

DRUGS (4)
  1. LINZESS (LINACLOTIDE) (145 MICROGRAM, CAPSULES) [Suspect]
     Indication: CONSTIPATION
     Route: 048
     Dates: start: 20130729
  2. NEXIUM (ESOMEPRAZOLE) [Concomitant]
  3. BENAZEPRIL (BENAZEPRIL) [Concomitant]
  4. XANAX (ALPRAZOLAM) [Concomitant]

REACTIONS (1)
  - Abdominal pain lower [None]
